FAERS Safety Report 20052073 (Version 2)
Quarter: 2021Q4

REPORT INFORMATION
  Report Type: Report from Study
  Country: US (occurrence: None)
  Receive Date: 20211110
  Receipt Date: 20211216
  Transmission Date: 20220303
  Serious: Yes (Other)
  Sender: FDA-Public Use
  Company Number: US-ROCHE-2901328

PATIENT
  Age: 66 Year
  Sex: Male
  Weight: 57.022 kg

DRUGS (7)
  1. ATEZOLIZUMAB [Suspect]
     Active Substance: ATEZOLIZUMAB
     Indication: Non-small cell lung cancer
     Dosage: ON 11/MAY/2021, HE RECEIVED MOST RECENT DOSE OF ATEZOLIZUMAB (1200 MG) PRIOR TO ONSET OF SERIOUS ADV
     Route: 041
     Dates: start: 20210420
  2. OMEPRAZOLE [Concomitant]
     Active Substance: OMEPRAZOLE
     Indication: Gastrooesophageal reflux disease
     Route: 048
  3. GUAIFENESIN [Concomitant]
     Active Substance: GUAIFENESIN
     Indication: Cough
     Dosage: 10-200 MG
     Dates: start: 2018
  4. PRIMIDONE [Concomitant]
     Active Substance: PRIMIDONE
     Indication: Tremor
     Dates: start: 201909
  5. PRIMIDONE [Concomitant]
     Active Substance: PRIMIDONE
     Dates: start: 201909
  6. ANORO ELLIPTA [Concomitant]
     Active Substance: UMECLIDINIUM BROMIDE\VILANTEROL TRIFENATATE
     Indication: Chronic obstructive pulmonary disease
     Dosage: 62.5-25 MCG
     Route: 055
     Dates: start: 202101
  7. HYCODAN (UNITED STATES) [Concomitant]
     Indication: Cough
     Dosage: 5-1.5 MG/5 ML
     Dates: start: 20210416

REACTIONS (1)
  - Pneumonia [Recovered/Resolved]

NARRATIVE: CASE EVENT DATE: 20210528
